FAERS Safety Report 5383361-9 (Version None)
Quarter: 2007Q3

REPORT INFORMATION
  Report Type: 
  Country: None (occurrence: None)
  Receive Date: 20070705
  Receipt Date: 20070619
  Transmission Date: 20080115
  Serious: Yes (Life-Threatening, Hospitalization)
  Sender: FDA-Public Use
  Company Number: DSA_30137_2007

PATIENT
  Age: 62 Year
  Sex: Female

DRUGS (1)
  1. UNI MASDIL (UNI MASDIL) [Suspect]
     Dosage: (200 MG QD ORAL)
     Route: 048
     Dates: start: 20070116, end: 20070118

REACTIONS (1)
  - AGRANULOCYTOSIS [None]
